FAERS Safety Report 7000954-3 (Version None)
Quarter: 2010Q3

REPORT INFORMATION
  Report Type: 
  Country: None (occurrence: None)
  Receive Date: 20100920
  Receipt Date: 20080623
  Transmission Date: 20110219
  Serious: Yes (Hospitalization, Other)
  Sender: FDA-Public Use
  Company Number: US-ASTRAZENECA-2006UW11085

PATIENT
  Age: 16624 Day
  Sex: Male

DRUGS (5)
  1. SEROQUEL [Suspect]
     Route: 048
     Dates: start: 20041201
  2. SEROQUEL [Suspect]
     Route: 048
  3. ZOLOFT [Concomitant]
     Route: 048
     Dates: start: 20050517
  4. DEPAKOTE [Concomitant]
     Dates: start: 20041129
  5. LOVASTATIN [Concomitant]
     Route: 048
     Dates: start: 20050901

REACTIONS (4)
  - DIABETES MELLITUS [None]
  - DIABETES MELLITUS INADEQUATE CONTROL [None]
  - DIABETIC KETOACIDOSIS [None]
  - TYPE 2 DIABETES MELLITUS [None]
